FAERS Safety Report 6593280-8 (Version None)
Quarter: 2010Q1

REPORT INFORMATION
  Report Type: 
  Country: None (occurrence: None)
  Receive Date: 20100222
  Receipt Date: 20090126
  Transmission Date: 20100710
  Serious: No
  Sender: FDA-Public Use
  Company Number: US-BRISTOL-MYERS SQUIBB COMPANY-14326961

PATIENT
  Age: 69 Year
  Sex: Male

DRUGS (1)
  1. ORENCIA [Suspect]
     Indication: RHEUMATOID ARTHRITIS
     Dosage: DRUG INTERRUPTED FOR 5MONTHS,1 DF=75 UNITS,18OCT07-15NOV,11DEC-10JAN08,07FEB08-13MAR08
     Route: 042
     Dates: start: 20071004

REACTIONS (1)
  - ANAEMIA [None]
